FAERS Safety Report 8002859-8 (Version None)
Quarter: 2011Q4

REPORT INFORMATION
  Report Type: 
  Country: None (occurrence: None)
  Receive Date: 20111222
  Receipt Date: 20101228
  Transmission Date: 20120403
  Serious: No
  Sender: FDA-Public Use
  Company Number: US-GLAXOSMITHKLINE-A0901678A

PATIENT
  Age: 85 Year
  Sex: Male

DRUGS (8)
  1. OMEPRAZOLE [Concomitant]
     Dates: start: 20090427, end: 20090427
  2. DORZOLAMIDE/TIMOLOL OPHTHALMIC SOLUTION [Concomitant]
     Route: 047
  3. AMLODIPINE [Concomitant]
     Route: 048
  4. PROPOXYPHENE HCL AND ACETAMINOPHEN [Concomitant]
     Route: 048
  5. CEPHALEXIN [Concomitant]
     Route: 048
  6. AVODART [Suspect]
     Indication: PRODUCT USED FOR UNKNOWN INDICATION
     Route: 048
  7. SOTALOL HCL [Concomitant]
  8. AZITHROMYCIN [Concomitant]
     Route: 047
     Dates: start: 20100317

REACTIONS (3)
  - THERAPEUTIC RESPONSE DECREASED [None]
  - PRODUCT QUALITY ISSUE [None]
  - PROSTATIC DISORDER [None]
